FAERS Safety Report 25364104 (Version 2)
Quarter: 2025Q2

REPORT INFORMATION
  Report Type: Spontaneous
  Country: UZ (occurrence: UZ)
  Receive Date: 20250527
  Receipt Date: 20250530
  Transmission Date: 20250716
  Serious: Yes (Other)
  Sender: NOVARTIS
  Company Number: UZ-002147023-NVSC2025UZ084205

PATIENT
  Age: 14 Year
  Sex: Male
  Weight: 65 kg

DRUGS (7)
  1. BASILIXIMAB [Suspect]
     Active Substance: BASILIXIMAB
     Indication: Immunosuppressant drug therapy
     Route: 065
  2. METHYLPREDNISOLONE [Suspect]
     Active Substance: METHYLPREDNISOLONE
     Indication: Immunosuppressant drug therapy
     Route: 065
  3. METHYLPREDNISOLONE [Suspect]
     Active Substance: METHYLPREDNISOLONE
     Dosage: 20 MG/KG, QD (FROM POSTOPERATIVE DAY 5, STARTED ON PULSE THERAPY, FOR 3 DAYS, FOLLOWED BY A GRADUAL
     Route: 065
  4. TACROLIMUS [Suspect]
     Active Substance: TACROLIMUS
     Indication: Immunosuppressant drug therapy
     Route: 065
  5. BORTEZOMIB [Concomitant]
     Active Substance: BORTEZOMIB
     Indication: Autoimmune hepatitis
     Route: 065
  6. VALPROIC ACID [Concomitant]
     Active Substance: VALPROIC ACID
     Indication: Delirium
     Route: 065
  7. HALOPERIDOL [Concomitant]
     Active Substance: HALOPERIDOL
     Indication: Delirium
     Route: 065

REACTIONS (5)
  - Polyneuropathy [Unknown]
  - Liver injury [Unknown]
  - Headache [Unknown]
  - Hypertension [Unknown]
  - Drug ineffective [Unknown]
